FAERS Safety Report 11944790 (Version 1)
Quarter: 2016Q1

REPORT INFORMATION
  Report Type: Spontaneous
  Country: IT (occurrence: IT)
  Receive Date: 20160125
  Receipt Date: 20160125
  Transmission Date: 20160526
  Serious: Yes (Other)
  Sender: FDA-Public Use
  Company Number: IT-JNJFOC-20160113859

PATIENT
  Age: 48 Year
  Sex: Male
  Weight: 160 kg

DRUGS (6)
  1. DIBASE [Concomitant]
     Active Substance: CHOLECALCIFEROL
     Indication: VITAMIN D DEFICIENCY
     Route: 048
  2. LYRICA [Concomitant]
     Active Substance: PREGABALIN
     Indication: NEURALGIA
     Route: 048
  3. INTELENCE [Suspect]
     Active Substance: ETRAVIRINE
     Indication: HIV INFECTION CDC CATEGORY C
     Route: 048
     Dates: start: 20131015, end: 20160115
  4. TORASEMIDE [Concomitant]
     Active Substance: TORSEMIDE
     Route: 048
  5. TRUVADA [Concomitant]
     Active Substance: EMTRICITABINE\TENOFOVIR DISOPROXIL FUMARATE
     Indication: HIV INFECTION CDC CATEGORY C
     Route: 048
     Dates: start: 20131015
  6. SERETIDE [Concomitant]
     Active Substance: FLUTICASONE FUROATE\SALMETEROL XINAFOATE
     Indication: CHRONIC OBSTRUCTIVE PULMONARY DISEASE
     Route: 055

REACTIONS (2)
  - Insomnia [Unknown]
  - Hypersensitivity [Unknown]

NARRATIVE: CASE EVENT DATE: 20160115
